FAERS Safety Report 20782800 (Version 2)
Quarter: 2022Q2

REPORT INFORMATION
  Report Type: Spontaneous
  Country: US (occurrence: US)
  Receive Date: 20220504
  Receipt Date: 20220610
  Transmission Date: 20220721
  Serious: No
  Sender: FDA-Public Use
  Company Number: US-PFIZER INC-202200543042

PATIENT
  Age: 16 Year
  Sex: Male

DRUGS (1)
  1. GENOTROPIN [Suspect]
     Active Substance: SOMATROPIN
     Dosage: 4.2 MG, 2X/DAY, (2 SHOTS EVERY EVENING)
     Dates: start: 2017

REACTIONS (2)
  - Device difficult to use [Unknown]
  - Device issue [Unknown]
